FAERS Safety Report 11564651 (Version 1)
Quarter: 2015Q3

REPORT INFORMATION
  Report Type: Spontaneous
  Country: US (occurrence: US)
  Receive Date: 20150916
  Receipt Date: 20150916
  Transmission Date: 20151125
  Serious: No
  Sender: FDA-Public Use
  Company Number: US-ELI_LILLY_AND_COMPANY-US200903006072

PATIENT
  Sex: Female

DRUGS (2)
  1. FORTEO [Suspect]
     Active Substance: TERIPARATIDE
  2. FORTEO [Suspect]
     Active Substance: TERIPARATIDE
     Dosage: UNK, UNK
     Dates: start: 20090313, end: 20090319

REACTIONS (7)
  - Migraine [Unknown]
  - Nausea [Unknown]
  - Bowel movement irregularity [Unknown]
  - Feeling hot [Unknown]
  - Hunger [Unknown]
  - Vomiting [Unknown]
  - Musculoskeletal stiffness [Unknown]
